FAERS Safety Report 6921841-2 (Version None)
Quarter: 2010Q3

REPORT INFORMATION
  Report Type: 
  Country: None (occurrence: None)
  Receive Date: 20100812
  Receipt Date: 20100802
  Transmission Date: 20110219
  Serious: Yes (Other)
  Sender: FDA-Public Use
  Company Number: ZA-ABBOTT-10P-143-0657356-00

PATIENT
  Sex: Male
  Weight: 85 kg

DRUGS (7)
  1. HUMIRA [Suspect]
     Indication: RHEUMATOID ARTHRITIS
     Route: 058
     Dates: start: 20091202, end: 20100607
  2. PREDNISONE TAB [Concomitant]
     Indication: RHEUMATOID ARTHRITIS
     Dosage: 10-15MG/DAILY
     Route: 048
     Dates: start: 20080101
  3. PREDNISONE TAB [Concomitant]
     Indication: POLYCHONDRITIS
  4. METHOTREXATE [Concomitant]
     Indication: RHEUMATOID ARTHRITIS
     Route: 048
     Dates: start: 20090504, end: 20100607
  5. METHOTREXATE [Concomitant]
     Indication: POLYCHONDRITIS
  6. CELEBREX [Concomitant]
     Indication: PRODUCT USED FOR UNKNOWN INDICATION
     Route: 048
     Dates: start: 20080101
  7. OMEPRAZOLE [Concomitant]
     Indication: HELICOBACTER TEST POSITIVE
     Dates: start: 20080101

REACTIONS (2)
  - PLEURITIC PAIN [None]
  - TUBERCULOSIS [None]
